FAERS Safety Report 9221019 (Version 1)
Quarter: 2013Q2

REPORT INFORMATION
  Report Type: Spontaneous
  Country: US (occurrence: US)
  Receive Date: 20130409
  Receipt Date: 20130409
  Transmission Date: 20140414
  Serious: Yes (Death, Other)
  Sender: FDA-Public Use
  Company Number: US-MILLENNIUM PHARMACEUTICALS, INC.-2013-02691

PATIENT
  Sex: 0

DRUGS (2)
  1. VELCADE [Suspect]
     Indication: NEOPLASM
     Dosage: 1.3 MG/M2, CYCLIC
     Route: 040
  2. TANESPIMYCIN [Suspect]
     Indication: NEOPLASM
     Dosage: 250 MG/M2, CYCLIC
     Route: 042

REACTIONS (4)
  - Acidosis [Fatal]
  - Colitis [Unknown]
  - Hypoxia [Unknown]
  - Hyponatraemia [Unknown]
